FAERS Safety Report 8335819-8 (Version None)
Quarter: 2012Q2

REPORT INFORMATION
  Report Type: 
  Country: None (occurrence: None)
  Receive Date: 20120504
  Receipt Date: 20120427
  Transmission Date: 20120825
  Serious: Yes (Other)
  Sender: FDA-Public Use
  Company Number: US-SHIRE-ALL1-2012-02189

PATIENT
  Age: 11 Year
  Sex: Male
  Weight: 48.98 kg

DRUGS (5)
  1. ADDERALL XR 10 [Suspect]
     Dosage: 20 MG, 1X/DAY:QD
     Route: 048
     Dates: start: 20120301, end: 20120401
  2. ADDERALL XR 10 [Suspect]
     Dosage: 25 MG, 1X/DAY:QD
     Route: 048
     Dates: start: 20120401
  3. UNSPECIFIED INHALER [Concomitant]
     Indication: ASTHMA
     Dosage: UNK, AS REQ'D (2 PUFFS AS NEEDED)
     Route: 055
     Dates: start: 20020101
  4. ADDERALL XR 10 [Suspect]
     Dosage: 15 MG, 1X/DAY:QD
     Route: 048
     Dates: start: 20120301, end: 20120301
  5. ADDERALL XR 10 [Suspect]
     Indication: ATTENTION DEFICIT/HYPERACTIVITY DISORDER
     Dosage: 10 MG, 1X/DAY:QD
     Route: 048
     Dates: start: 20120201, end: 20120301

REACTIONS (9)
  - AGITATION [None]
  - HEADACHE [None]
  - ABNORMAL LOSS OF WEIGHT [None]
  - NERVOUSNESS [None]
  - HALLUCINATION [None]
  - OROPHARYNGEAL PAIN [None]
  - FLAT AFFECT [None]
  - DECREASED APPETITE [None]
  - MOOD SWINGS [None]
